FAERS Safety Report 16226352 (Version 1)
Quarter: 2019Q2

REPORT INFORMATION
  Report Type: Spontaneous
  Country: US (occurrence: US)
  Receive Date: 20190423
  Receipt Date: 20190423
  Transmission Date: 20190711
  Serious: No
  Sender: FDA-Public Use
  Company Number: US-B.I. PHARMACEUTICALS,INC./RIDGEFIELD-2019-BI-017808

PATIENT
  Age: 79 Year
  Sex: Female

DRUGS (1)
  1. SPIRIVA [Suspect]
     Active Substance: TIOTROPIUM BROMIDE MONOHYDRATE
     Indication: CHRONIC OBSTRUCTIVE PULMONARY DISEASE
     Dosage: ADMINISTRATION CORRECT? YES ?ACTION(S) TAKEN WITH PRODUCT: DRUG WITHDRAWN
     Route: 055

REACTIONS (4)
  - Wheezing [Not Recovered/Not Resolved]
  - Breath sounds abnormal [Not Recovered/Not Resolved]
  - Cough [Not Recovered/Not Resolved]
  - Poor quality sleep [Not Recovered/Not Resolved]

NARRATIVE: CASE EVENT DATE: 201903
